FAERS Safety Report 11441775 (Version 1)
Quarter: 2015Q3

REPORT INFORMATION
  Report Type: Spontaneous
  Country: JP (occurrence: JP)
  Receive Date: 20150901
  Receipt Date: 20150901
  Transmission Date: 20151125
  Serious: Yes (Other)
  Sender: FDA-Public Use
  Company Number: JP-PFIZER INC-2015284093

PATIENT
  Sex: Female

DRUGS (1)
  1. XALATAN [Suspect]
     Active Substance: LATANOPROST
     Dosage: UNK
     Dates: end: 20150820

REACTIONS (5)
  - Heart rate increased [Unknown]
  - Blood pressure increased [Unknown]
  - Dizziness [Unknown]
  - Visual acuity reduced [Unknown]
  - Dry eye [Unknown]

NARRATIVE: CASE EVENT DATE: 20140702
